FAERS Safety Report 18473275 (Version 1)
Quarter: 2020Q4

REPORT INFORMATION
  Report Type: Spontaneous
  Country: US (occurrence: US)
  Receive Date: 20201104
  Receipt Date: 20201104
  Transmission Date: 20210114
  Serious: Yes (Other)
  Sender: FDA-Public Use
  Company Number: None

PATIENT
  Age: 69 Year
  Sex: Male
  Weight: 102 kg

DRUGS (50)
  1. CHLORHEXIDINE 0.12% ORAL RINSE [Suspect]
     Active Substance: CHLORHEXIDINE
     Indication: PRODUCT USED FOR UNKNOWN INDICATION
     Dosage: ?          OTHER FREQUENCY:Q12H;?
     Route: 002
     Dates: start: 20200929, end: 20201021
  2. ACETAMINOPHEN. [Concomitant]
     Active Substance: ACETAMINOPHEN
  3. ALPRAZOLAM. [Concomitant]
     Active Substance: ALPRAZOLAM
  4. CEFEPIME [Concomitant]
     Active Substance: CEFEPIME HYDROCHLORIDE
  5. D10W [Concomitant]
     Active Substance: DEXTROSE\WATER
  6. DIGOXLN [Concomitant]
  7. DILTIAZEM CR [Concomitant]
  8. NS [Concomitant]
     Active Substance: SODIUM CHLORIDE
  9. DEXTROSE, UNSPECIFIED FORM. [Concomitant]
     Active Substance: DEXTROSE, UNSPECIFIED FORM
  10. DEXTROSE, UNSPECIFIED FORM. [Concomitant]
     Active Substance: DEXTROSE, UNSPECIFIED FORM
  11. FAMOTIDINE. [Concomitant]
     Active Substance: FAMOTIDINE
  12. INFLUENZA VIRUS VACCINE [Concomitant]
     Active Substance: INFLUENZA VIRUS VACCINE
  13. KETAMINE [Concomitant]
     Active Substance: KETAMINE
  14. MIDAZOLAM. [Concomitant]
     Active Substance: MIDAZOLAM
  15. MIDODRINE [Suspect]
     Active Substance: MIDODRINE
  16. PROPOFOL. [Concomitant]
     Active Substance: PROPOFOL
  17. LORAZEPAM. [Suspect]
     Active Substance: LORAZEPAM
  18. ROCURONIUM [Concomitant]
     Active Substance: ROCURONIUM BROMIDE
  19. SENNA [Concomitant]
     Active Substance: SENNA LEAF\SENNOSIDES\SENNOSIDES A AND B
  20. SOD/CAL/MG/POT [Concomitant]
  21. DEXTROSE, UNSPECIFIED FORM. [Concomitant]
     Active Substance: DEXTROSE, UNSPECIFIED FORM
  22. INSULIN LISPRO [Concomitant]
     Active Substance: INSULIN LISPRO
  23. K PHOS/NAPHOS [Concomitant]
  24. LACTATED RINGERS SOLUTION [Concomitant]
     Active Substance: CALCIUM CHLORIDE\POTASSIUM CHLORIDE\SODIUM CHLORIDE\SODIUM LACTATE
  25. ONDANSETRON [Concomitant]
     Active Substance: ONDANSETRON
  26. SODIUM PHOSPHATE [Concomitant]
     Active Substance: SODIUM PHOSPHATE
  27. ALBUMIN [Concomitant]
     Active Substance: ALBUMIN HUMAN
  28. AMLODARONE [Concomitant]
  29. DETROSE [Concomitant]
  30. INSULIN GLARGINE [Concomitant]
     Active Substance: INSULIN GLARGINE
  31. MAGNESIUM OXIDE. [Concomitant]
     Active Substance: MAGNESIUM OXIDE
  32. POTASSIUM BICARBONATE. [Concomitant]
     Active Substance: POTASSIUM BICARBONATE
  33. SUGAMMADEX [Concomitant]
     Active Substance: SUGAMMADEX
  34. CHLORHEXIDINE [Concomitant]
     Active Substance: CHLORHEXIDINE
  35. PHENYLEPHRINE [Concomitant]
     Active Substance: PHENYLEPHRINE HYDROCHLORIDE
  36. PREMIX TITRATABLE DILUENT [Concomitant]
  37. SOD BICARB [Concomitant]
  38. SODIUM CHLORIDE. [Concomitant]
     Active Substance: SODIUM CHLORIDE
  39. TAMSULOSIN [Concomitant]
     Active Substance: TAMSULOSIN
  40. SODIUM CHLORIDE. [Concomitant]
     Active Substance: SODIUM CHLORIDE
  41. DEXTROSE, UNSPECIFIED FORM. [Concomitant]
     Active Substance: DEXTROSE, UNSPECIFIED FORM
  42. DEXMEDETOMIDINE. [Concomitant]
     Active Substance: DEXMEDETOMIDINE
  43. DOCUSATE SOD [Concomitant]
  44. FUROSEMIDE. [Concomitant]
     Active Substance: FUROSEMIDE
  45. HEPARIN [Concomitant]
     Active Substance: HEPARIN SODIUM
  46. METRONIDAZOLE. [Concomitant]
     Active Substance: METRONIDAZOLE
  47. VANCOMYCIN [Concomitant]
     Active Substance: VANCOMYCIN
  48. VAPOPRESSIN [Concomitant]
  49. FENTANYL. [Concomitant]
     Active Substance: FENTANYL
  50. NOREPINEPHRINE. [Concomitant]
     Active Substance: NOREPINEPHRINE

REACTIONS (4)
  - Recalled product administered [None]
  - Product contamination [None]
  - Pancreatitis [None]
  - Metabolic encephalopathy [None]

NARRATIVE: CASE EVENT DATE: 20201005
